FAERS Safety Report 9917451 (Version 1)
Quarter: 2014Q1

REPORT INFORMATION
  Report Type: Spontaneous
  Country: US (occurrence: US)
  Receive Date: 20140221
  Receipt Date: 20140221
  Transmission Date: 20141002
  Serious: No
  Sender: FDA-Public Use
  Company Number: US-PFIZER INC-2014050610

PATIENT
  Age: 45 Year
  Sex: Female
  Weight: 53.52 kg

DRUGS (2)
  1. GABAPENTIN [Suspect]
     Indication: NEUROPATHY PERIPHERAL
     Dosage: UNK
     Dates: start: 2000, end: 2000
  2. GABAPENTIN [Suspect]
     Indication: NERVE INJURY

REACTIONS (1)
  - Drug ineffective for unapproved indication [Unknown]
